FAERS Safety Report 20560051 (Version 1)
Quarter: 2022Q1

REPORT INFORMATION
  Report Type: Spontaneous
  Country: US (occurrence: US)
  Receive Date: 20220307
  Receipt Date: 20220307
  Transmission Date: 20220423
  Serious: No
  Sender: FDA-Public Use
  Company Number: US-PFIZER INC-2021873441

PATIENT
  Age: 59 Year
  Sex: Female
  Weight: 81.633 kg

DRUGS (2)
  1. XELJANZ XR [Suspect]
     Active Substance: TOFACITINIB CITRATE
     Indication: Rheumatoid arthritis
     Dosage: 11 MG, 1X/DAY
     Route: 048
     Dates: start: 202106
  2. PREDNISONE [Concomitant]
     Active Substance: PREDNISONE
     Dosage: UNK, AS NEEDED

REACTIONS (1)
  - Condition aggravated [Unknown]
